FAERS Safety Report 13941246 (Version 3)
Quarter: 2017Q3

REPORT INFORMATION
  Report Type: Spontaneous
  Country: US (occurrence: US)
  Receive Date: 20170906
  Receipt Date: 20170925
  Transmission Date: 20171127
  Serious: No
  Sender: FDA-Public Use
  Company Number: US-SUNOVION-2017SUN003761

PATIENT

DRUGS (2)
  1. CAFFEINE. [Interacting]
     Active Substance: CAFFEINE
     Route: 048
  2. LATUDA [Suspect]
     Active Substance: LURASIDONE HYDROCHLORIDE
     Dosage: UNK UNK, QD
     Route: 048

REACTIONS (3)
  - Somnolence [Unknown]
  - Dizziness [Unknown]
  - Drug interaction [Unknown]
